FAERS Safety Report 4686319-8 (Version None)
Quarter: 2005Q2

REPORT INFORMATION
  Report Type: 
  Country: None (occurrence: None)
  Receive Date: 20050609
  Receipt Date: 20050530
  Transmission Date: 20051028
  Serious: Yes (Hospitalization)
  Sender: FDA-Public Use
  Company Number: PHNU2005SI02113

PATIENT
  Age: 3 Year
  Sex: Female

DRUGS (3)
  1. ELIDEL [Suspect]
     Indication: DERMATITIS ATOPIC
     Dosage: 1 DF, BID
     Route: 061
     Dates: start: 20040106, end: 20040301
  2. PROGRAF [Concomitant]
     Dosage: 0.4 MG + 0.3 MG/DAY
     Route: 048
     Dates: start: 20020704
  3. CEFOTAXIME [Suspect]
     Route: 042

REACTIONS (2)
  - HOUSE DUST ALLERGY [None]
  - SCAB [None]
